APPROVED DRUG PRODUCT: METHYLPHENIDATE HYDROCHLORIDE
Active Ingredient: METHYLPHENIDATE HYDROCHLORIDE
Strength: 20MG
Dosage Form/Route: CAPSULE, EXTENDED RELEASE;ORAL
Application: A205105 | Product #002 | TE Code: AB2
Applicant: IMPAX LABORATORIES INC
Approved: Jul 28, 2016 | RLD: No | RS: No | Type: RX